FAERS Safety Report 14815502 (Version 1)
Quarter: 2018Q2

REPORT INFORMATION
  Report Type: Spontaneous
  Country: US (occurrence: US)
  Receive Date: 20180426
  Receipt Date: 20180426
  Transmission Date: 20180711
  Serious: Yes (Other)
  Sender: FDA-Public Use
  Company Number: US-COOPERSURGICAL, INC.-US-2018CPS000439

PATIENT

DRUGS (1)
  1. PARAGARD T 380A [Suspect]
     Active Substance: COPPER
     Indication: PRODUCT USED FOR UNKNOWN INDICATION
     Dosage: UNK
     Route: 015
     Dates: end: 20170724

REACTIONS (9)
  - Device dislocation [Recovered/Resolved]
  - Complication of device removal [Recovered/Resolved]
  - Device breakage [Unknown]
  - Uterine adhesions [Recovered/Resolved]
  - Infertility female [Not Recovered/Not Resolved]
  - Pain [Unknown]
  - Adnexal torsion [Recovered/Resolved]
  - Fallopian tube enlargement [Recovered/Resolved]
  - Foreign body in urogenital tract [Recovered/Resolved]

NARRATIVE: CASE EVENT DATE: 20170724
